FAERS Safety Report 8130727-X (Version None)
Quarter: 2012Q1

REPORT INFORMATION
  Report Type: 
  Country: None (occurrence: None)
  Receive Date: 20120213
  Receipt Date: 20120202
  Transmission Date: 20120608
  Serious: No
  Sender: FDA-Public Use
  Company Number: US-BIOGENIDEC-2012BI004337

PATIENT
  Sex: Female

DRUGS (2)
  1. VIIBRYD [Concomitant]
     Indication: DEPRESSION
  2. TYSABRI [Suspect]
     Indication: MULTIPLE SCLEROSIS
     Route: 042
     Dates: start: 20110607

REACTIONS (3)
  - STRESS [None]
  - FATIGUE [None]
  - MUSCLE SPASMS [None]
